FAERS Safety Report 19098194 (Version 1)
Quarter: 2021Q2

REPORT INFORMATION
  Report Type: Report from Study
  Country: AZ (occurrence: AZ)
  Receive Date: 20210406
  Receipt Date: 20210406
  Transmission Date: 20210717
  Serious: Yes (Congenital Anomaly, Other)
  Sender: FDA-Public Use
  Company Number: AZ-SUN PHARMACEUTICAL INDUSTRIES LTD-2021R1-289504

PATIENT

DRUGS (1)
  1. LEVETIRACETAM. [Suspect]
     Active Substance: LEVETIRACETAM
     Indication: EPILEPSY
     Dosage: 125 MILLIGRAM, DAILY
     Route: 064

REACTIONS (2)
  - Fallot^s tetralogy [Unknown]
  - Trisomy 21 [Unknown]
